FAERS Safety Report 9338090 (Version 1)
Quarter: 2013Q2

REPORT INFORMATION
  Report Type: Spontaneous
  Country: US (occurrence: US)
  Receive Date: 20130610
  Receipt Date: 20130610
  Transmission Date: 20140414
  Serious: No
  Sender: FDA-Public Use
  Company Number: US-009507513-1306USA003254

PATIENT
  Sex: Female
  Weight: 69.84 kg

DRUGS (1)
  1. IMPLANON [Suspect]
     Dosage: 1 DF, UNK
     Route: 059
     Dates: start: 2010

REACTIONS (3)
  - Medical device complication [Unknown]
  - Incorrect drug administration duration [Unknown]
  - No adverse event [Unknown]
